FAERS Safety Report 25677757 (Version 1)
Quarter: 2025Q3

REPORT INFORMATION
  Report Type: Spontaneous
  Country: EU (occurrence: EU)
  Receive Date: 20250813
  Receipt Date: 20250813
  Transmission Date: 20251020
  Serious: Yes (Other)
  Sender: MYLAN
  Company Number: EU-TEVA-VS-3354613

PATIENT
  Age: 49 Year
  Sex: Male

DRUGS (2)
  1. VENLAFAXINE [Suspect]
     Active Substance: VENLAFAXINE HYDROCHLORIDE
     Indication: Product used for unknown indication
     Dosage: UNK UNK, QD (EXTENDED-RELEASE CAPSULE, DOSES UPTO 150 MG PER DAY AS THE MAXIMUM DOSE  )
     Dates: start: 2009
  2. VENLAFAXINE [Suspect]
     Active Substance: VENLAFAXINE HYDROCHLORIDE
     Dosage: 37.5 MILLIGRAM, QD (EXTENDED-RELEASE CAPSULE)
     Dates: start: 2019

REACTIONS (4)
  - Electric shock sensation [Recovering/Resolving]
  - Paraesthesia [Recovering/Resolving]
  - Discomfort [Recovering/Resolving]
  - Withdrawal syndrome [Recovering/Resolving]
